FAERS Safety Report 8234640-9 (Version None)
Quarter: 2012Q1

REPORT INFORMATION
  Report Type: 
  Country: None (occurrence: None)
  Receive Date: 20120321
  Receipt Date: 20120307
  Transmission Date: 20120608
  Serious: Yes (Death, Life-Threatening, Hospitalization, Other)
  Sender: FDA-Public Use
  Company Number: 2008AL011981

PATIENT
  Age: 67 Year
  Sex: Male
  Weight: 81.6475 kg

DRUGS (52)
  1. NITROLINGUAL [Concomitant]
  2. NEURONTIN [Concomitant]
  3. LOPRESSOR [Concomitant]
  4. COUMADIN [Concomitant]
  5. TYLENOL [Concomitant]
  6. DOXYCYCLINE [Concomitant]
  7. PLAVIX [Concomitant]
  8. DIGOXIN [Suspect]
     Dosage: 0.25 MG;QD;PO
     Route: 048
     Dates: start: 20060101, end: 20090227
  9. LIPITOR [Concomitant]
  10. TOPROL-XL [Concomitant]
  11. PLAVIX [Concomitant]
  12. ADVAIR DISKUS 100/50 [Concomitant]
  13. ALBUTEROL [Concomitant]
  14. PROAIR HFA [Concomitant]
  15. WARFARIN SODIUM [Concomitant]
  16. PREVACID [Concomitant]
  17. ACCUPRIL [Concomitant]
  18. IMDUR [Concomitant]
  19. ALBUTEROL [Concomitant]
  20. QUINAPRIL [Concomitant]
  21. FUROSEMIDE [Concomitant]
  22. ATROVENT [Concomitant]
  23. SULFAMETHOXAZOLE AND TRIMETHOPRIM [Concomitant]
  24. IRON SULFATETHIAMIN COMPOUND TAB [Concomitant]
  25. VERAPAMIL [Concomitant]
  26. CLOPIDOGREL [Concomitant]
  27. METRONIDAZOLE [Concomitant]
  28. MAG-OXIDE [Concomitant]
  29. NITRO-DUR [Concomitant]
  30. REMERON [Concomitant]
  31. ASPIRIN [Concomitant]
  32. VERAPAMIL [Concomitant]
  33. ISOSORBIDE DINITRATE [Concomitant]
  34. GABAPENTIN [Concomitant]
  35. FERROUS SULFATE TAB [Concomitant]
  36. HYDROCODONE BITARTRATE AND ACETAMINOPHEN [Concomitant]
  37. METOPROLOL SUCCINATE [Concomitant]
  38. AVELOX [Concomitant]
  39. COMBIVENT [Concomitant]
  40. PROTONIX [Concomitant]
  41. ROCEPHIN [Concomitant]
  42. TOPROL-XL [Concomitant]
  43. LEVAQUIN [Concomitant]
  44. ALLEGRA [Concomitant]
  45. ZAROXOLYN [Concomitant]
  46. POTASSIUM [Concomitant]
  47. LASIX [Concomitant]
  48. GLYBURIDE [Concomitant]
  49. MEDROL [Concomitant]
  50. PRILOSEC [Concomitant]
  51. FLAGYL [Concomitant]
  52. VICODIN [Concomitant]

REACTIONS (87)
  - BRONCHITIS [None]
  - HEART RATE IRREGULAR [None]
  - INTERMITTENT CLAUDICATION [None]
  - DYSPNOEA EXERTIONAL [None]
  - CHEST DISCOMFORT [None]
  - CORONARY ARTERY STENOSIS [None]
  - LYMPHADENOPATHY [None]
  - BRONCHIAL SECRETION RETENTION [None]
  - ARTERIOSCLEROSIS [None]
  - ATRIAL FIBRILLATION [None]
  - WALKING AID USER [None]
  - PRODUCTIVE COUGH [None]
  - ATELECTASIS [None]
  - NODULE [None]
  - CORONARY ARTERY OCCLUSION [None]
  - COLLATERAL CIRCULATION [None]
  - BUNDLE BRANCH BLOCK [None]
  - RHONCHI [None]
  - BREATH SOUNDS ABNORMAL [None]
  - ELECTROCARDIOGRAM T WAVE ABNORMAL [None]
  - RESPIRATORY RATE INCREASED [None]
  - RECTAL HAEMORRHAGE [None]
  - HEADACHE [None]
  - PNEUMONIA [None]
  - METABOLIC ALKALOSIS [None]
  - LUNG INFILTRATION [None]
  - ACUTE MYOCARDIAL INFARCTION [None]
  - HYPOTONIA [None]
  - LUNG CONSOLIDATION [None]
  - PNEUMOTHORAX [None]
  - LARGE INTESTINAL HAEMORRHAGE [None]
  - HAEMATOCHEZIA [None]
  - HAEMATURIA [None]
  - UPPER RESPIRATORY TRACT INFECTION [None]
  - HYPERKALAEMIA [None]
  - HYPOKALAEMIA [None]
  - ASCITES [None]
  - APHASIA [None]
  - ELECTROCARDIOGRAM ABNORMAL [None]
  - EXTRASYSTOLES [None]
  - BODY TEMPERATURE INCREASED [None]
  - LUNG NEOPLASM [None]
  - HAEMORRHAGIC ANAEMIA [None]
  - ABDOMINAL PAIN LOWER [None]
  - BRONCHIAL DISORDER [None]
  - RALES [None]
  - LEFT ATRIAL DILATATION [None]
  - DIVERTICULITIS [None]
  - MYOCARDIAL ISCHAEMIA [None]
  - LUNG NEOPLASM MALIGNANT [None]
  - EPISTAXIS [None]
  - DIVERTICULUM [None]
  - CEREBROVASCULAR ACCIDENT [None]
  - CARDIAC FAILURE CONGESTIVE [None]
  - UPPER RESPIRATORY TRACT CONGESTION [None]
  - TREATMENT NONCOMPLIANCE [None]
  - FALL [None]
  - LEUKOCYTOSIS [None]
  - CHOLELITHIASIS [None]
  - COLONIC POLYP [None]
  - IN-STENT CORONARY ARTERY RESTENOSIS [None]
  - OEDEMA PERIPHERAL [None]
  - SKIN TURGOR DECREASED [None]
  - MEMORY IMPAIRMENT [None]
  - GAIT DISTURBANCE [None]
  - MULTIPLE INJURIES [None]
  - INFECTIVE EXACERBATION OF CHRONIC OBSTRUCTIVE AIRWAYS DISEASE [None]
  - PERIPHERAL ARTERIAL OCCLUSIVE DISEASE [None]
  - BLOOD PRESSURE INCREASED [None]
  - REFUSAL OF TREATMENT BY PATIENT [None]
  - TRACHEAL DISORDER [None]
  - PLEURAL EFFUSION [None]
  - CARDIOMEGALY [None]
  - PULSE PRESSURE DECREASED [None]
  - DISORIENTATION [None]
  - PALPITATIONS [None]
  - BRONCHOPNEUMONIA [None]
  - DYSARTHRIA [None]
  - AGITATION [None]
  - HEMIPARESIS [None]
  - FLANK PAIN [None]
  - HEPATIC CIRRHOSIS [None]
  - RENAL INFARCT [None]
  - RENAL EMBOLISM [None]
  - PHARYNGEAL ERYTHEMA [None]
  - LEFT VENTRICULAR DYSFUNCTION [None]
  - WHEEZING [None]
